FAERS Safety Report 7825384-3 (Version None)
Quarter: 2011Q4

REPORT INFORMATION
  Report Type: 
  Country: None (occurrence: None)
  Receive Date: 20111019
  Receipt Date: 20111011
  Transmission Date: 20120403
  Serious: Yes (Hospitalization, Other)
  Sender: FDA-Public Use
  Company Number: PHHY2011PT91293

PATIENT
  Sex: Female

DRUGS (2)
  1. DOCETAXEL [Suspect]
     Indication: BONE SARCOMA
     Dosage: UNK
  2. GEMCITABINE HYDROCHLORIDE [Suspect]
     Indication: BONE SARCOMA
     Dosage: UNK

REACTIONS (2)
  - STATUS EPILEPTICUS [None]
  - POSTERIOR REVERSIBLE ENCEPHALOPATHY SYNDROME [None]
